FAERS Safety Report 9214929 (Version 1)
Quarter: 2013Q2

REPORT INFORMATION
  Report Type: Report from Study
  Country: SK (occurrence: SK)
  Receive Date: 20130405
  Receipt Date: 20130405
  Transmission Date: 20140414
  Serious: Yes (Hospitalization)
  Sender: FDA-Public Use
  Company Number: SK-AMGEN-SVKCT2011002138

PATIENT
  Age: 71 Year
  Sex: Male

DRUGS (4)
  1. DENOSUMAB [Suspect]
     Indication: PROSTATE CANCER
     Dates: start: 20070527, end: 20101011
  2. FOKUSIN [Concomitant]
     Dosage: UNK UNK, QD
  3. BICALUTAMID TEVA [Concomitant]
     Dosage: 50 MG, QD
  4. KOMBI KALZ [Concomitant]
     Dosage: UNK UNK, QD

REACTIONS (1)
  - Osteonecrosis of jaw [Recovered/Resolved]
